FAERS Safety Report 11497484 (Version 2)
Quarter: 2015Q4

REPORT INFORMATION
  Report Type: Spontaneous
  Country: HU (occurrence: HU)
  Receive Date: 20150911
  Receipt Date: 20151030
  Transmission Date: 20160304
  Serious: Yes (Death)
  Sender: FDA-Public Use
  Company Number: HU-ABBVIE-15P-076-1460171-00

PATIENT
  Age: 52 Year
  Sex: Male
  Weight: 91 kg

DRUGS (4)
  1. VIEKIRAX [Suspect]
     Active Substance: OMBITASVIR\PARITAPREVIR\RITONAVIR
     Indication: HEPATITIS C
     Dosage: 12.5/75/50MG, 2 TABLETS AT A TIME
     Route: 048
     Dates: start: 20150604
  2. EXVIERA [Suspect]
     Active Substance: DASABUVIR
     Indication: HEPATITIS C
     Route: 048
     Dates: start: 20150604
  3. AMLODIPIN [Concomitant]
     Active Substance: AMLODIPINE BESYLATE
     Indication: HYPERTENSION
     Dosage: 2.5MG
     Route: 048
  4. BETALOC [Concomitant]
     Active Substance: METOPROLOL TARTRATE
     Indication: HYPERTENSION
     Dosage: 50MG
     Route: 048

REACTIONS (1)
  - Cardiac arrest [Fatal]

NARRATIVE: CASE EVENT DATE: 20150606
